FAERS Safety Report 25370587 (Version 1)
Quarter: 2025Q2

REPORT INFORMATION
  Report Type: Spontaneous
  Country: GB (occurrence: GB)
  Receive Date: 20250528
  Receipt Date: 20250528
  Transmission Date: 20250717
  Serious: Yes (Hospitalization, Other)
  Sender: PRASCO
  Company Number: None

PATIENT
  Age: 64 Year
  Sex: Female

DRUGS (23)
  1. NITROGLYCERIN [Suspect]
     Active Substance: NITROGLYCERIN
     Indication: Chest pain
     Route: 060
  2. BUMETANIDE [Suspect]
     Active Substance: BUMETANIDE
     Indication: Product used for unknown indication
     Dosage: 1 MG TABLETS TAKE ONE IN THE MORNING AND ONE AT LUNCHTIME
     Route: 048
     Dates: start: 20250428
  3. RAMIPRIL [Suspect]
     Active Substance: RAMIPRIL
     Indication: Product used for unknown indication
     Dosage: 2.5 MG CAPSULES TWICE A DAY - REDUCED AND DOSE CHANGED TO NIGHT
  4. BISOPROLOL [Suspect]
     Active Substance: BISOPROLOL
     Indication: Product used for unknown indication
     Dosage: 2.5 MG TABLETS TAKE ONE TABLET DAILY
     Route: 048
  5. EPLERENONE [Suspect]
     Active Substance: EPLERENONE
     Indication: Product used for unknown indication
     Dosage: 25 MG TABLETS ONE TO BE TAKEN IN THE MORNING
     Route: 048
  6. ATORVASTATIN [Concomitant]
     Active Substance: ATORVASTATIN
     Indication: Product used for unknown indication
     Dosage: 80 MG TABLETS ONE TO BE TAKEN AT NIGHT
     Route: 048
  7. LORATADINE [Concomitant]
     Active Substance: LORATADINE
     Indication: Product used for unknown indication
     Dosage: 10 MG TABLETS ONE TO BE TAKEN DAILY
     Route: 048
  8. ZOPICLONE [Concomitant]
     Active Substance: ZOPICLONE
     Indication: Product used for unknown indication
     Dosage: 7.5 MG TABLETS ONE TO BE TAKEN AT NIGHT, PRN, SHORT TERM, ADDICTIVE, WEAN OFF 7 TABLET
     Route: 048
  9. Adcal-D3 Dissolve 1500mg/400unit effervescent tablets [Concomitant]
     Indication: Product used for unknown indication
     Dosage: DISSOLVE 1500 MG / 400 UNIT EFFERVESCENT TABLETS TWICE A DAY
     Route: 048
  10. Pregabalin 300mg capsules [Concomitant]
     Indication: Product used for unknown indication
     Dosage: 300 MG CAPSULES ONE TO BE TAKEN TWICE A DAY
     Route: 048
  11. FOLIC ACID [Concomitant]
     Active Substance: FOLIC ACID
     Indication: Product used for unknown indication
     Dosage: 5 MG TABLETS ONE TO BE TAKEN EACH DAY
     Route: 048
  12. LANSOPRAZOLE [Concomitant]
     Active Substance: LANSOPRAZOLE
     Indication: Product used for unknown indication
     Dosage: 15 MG GASTRO-RESISTANT CAPSULES ONE TO BE TAKEN EACH MORNING
     Route: 048
  13. CLOTRIMAZOLE [Concomitant]
     Active Substance: CLOTRIMAZOLE
     Indication: Product used for unknown indication
     Dosage: 2% CREAM APPLY TWICE A DAY 20 GRAM
     Route: 061
  14. Allopurinol 100mg tablets [Concomitant]
     Indication: Product used for unknown indication
     Dosage: 100 MG TABLETS ONE TO BE TAKEN EACH DAY AFTER FOOD
     Route: 048
     Dates: start: 20250428
  15. BECLOMETHASONE DIPROPIONATE\FORMOTEROL FUMARATE\GLYCOPYRROLATE [Concomitant]
     Active Substance: BECLOMETHASONE DIPROPIONATE\FORMOTEROL FUMARATE\GLYCOPYRROLATE
     Indication: Product used for unknown indication
     Route: 055
  16. CLOPIDOGREL [Concomitant]
     Active Substance: CLOPIDOGREL BISULFATE
     Indication: Product used for unknown indication
     Dosage: 75 MG TABLETS ONE TO BE TAKEN EACH MORNING, UNTIL NOVEMBER 2025
     Route: 048
  17. DAPAGLIFLOZIN [Concomitant]
     Active Substance: DAPAGLIFLOZIN
     Indication: Product used for unknown indication
     Dosage: 10 MG TABLETS ONE TO BE TAKEN DAILY
     Route: 048
  18. ASPIRIN [Concomitant]
     Active Substance: ASPIRIN
     Indication: Product used for unknown indication
     Dosage: 75 MG TABLETS ONE TO BE TAKEN EACH MORNING
     Route: 048
  19. DOXYCYCLINE [Concomitant]
     Active Substance: DOXYCYCLINE
     Indication: Product used for unknown indication
     Dosage: 100 MG CAPSULES ONE TO BE TAKEN EACH DAY, PER DERMATOLOGY CLINIC
     Route: 048
  20. INSULIN ASPART [Concomitant]
     Active Substance: INSULIN ASPART
     Indication: Product used for unknown indication
     Route: 065
  21. FLUCONAZOLE [Concomitant]
     Active Substance: FLUCONAZOLE
     Indication: Product used for unknown indication
     Route: 048
  22. DIHYDROCODEINE [Concomitant]
     Active Substance: DIHYDROCODEINE
     Indication: Product used for unknown indication
     Route: 048
  23. ALBUTEROL [Concomitant]
     Active Substance: ALBUTEROL
     Indication: Product used for unknown indication
     Route: 055

REACTIONS (3)
  - Dizziness [Unknown]
  - Femoral neck fracture [Unknown]
  - Fall [Recovered/Resolved]
